FAERS Safety Report 15359942 (Version 1)
Quarter: 2018Q3

REPORT INFORMATION
  Report Type: Spontaneous
  Country: US (occurrence: US)
  Receive Date: 20180907
  Receipt Date: 20180907
  Transmission Date: 20181010
  Serious: No
  Sender: FDA-Public Use
  Company Number: US-AUROBINDO-AUR-APL-2018-043979

PATIENT
  Sex: Male

DRUGS (1)
  1. OXYCODONE+ACETAMINOPHEN [Suspect]
     Active Substance: ACETAMINOPHEN\OXYCODONE HYDROCHLORIDE
     Indication: PRODUCT USED FOR UNKNOWN INDICATION
     Route: 065

REACTIONS (6)
  - Abdominal pain upper [Unknown]
  - Dizziness [Unknown]
  - Flatulence [Unknown]
  - Dyspnoea [Unknown]
  - Chills [Unknown]
  - Anxiety [Unknown]
